FAERS Safety Report 4545512-5 (Version None)
Quarter: 2005Q1

REPORT INFORMATION
  Report Type: 
  Country: None (occurrence: None)
  Receive Date: 20050105
  Receipt Date: 20040401
  Transmission Date: 20050727
  Serious: Yes (Hospitalization, Disabling, Other)
  Sender: FDA-Public Use
  Company Number: US-MERCK-0404USA00099

PATIENT
  Age: 46 Year
  Sex: Female
  Weight: 98 kg

DRUGS (4)
  1. VIOXX [Suspect]
     Indication: JOINT INJURY
     Route: 048
     Dates: start: 20010802, end: 20010804
  2. KEFLEX [Concomitant]
     Indication: ANKLE OPERATION
     Route: 065
     Dates: start: 20010129
  3. ADENOSINE [Concomitant]
     Route: 065
  4. [THERAPY UNSPECIFIED] [Concomitant]
     Route: 065

REACTIONS (24)
  - ARTHRITIS [None]
  - BLADDER SPASM [None]
  - CARDIOMEGALY [None]
  - CELLULITIS [None]
  - CEREBRAL HAEMORRHAGE [None]
  - CEREBROVASCULAR ACCIDENT [None]
  - CONVULSION [None]
  - DEPRESSION [None]
  - EMOTIONAL DISTRESS [None]
  - FACIAL PAIN [None]
  - FRACTURE MALUNION [None]
  - GENERALISED ANXIETY DISORDER [None]
  - HAEMORRHAGE [None]
  - HYPERTENSION [None]
  - HYPERTRIGLYCERIDAEMIA [None]
  - HYPOTENSION [None]
  - NASAL CONGESTION [None]
  - POST-TRAUMATIC STRESS DISORDER [None]
  - SKIN LACERATION [None]
  - SLEEP DISORDER [None]
  - TRANSIENT ISCHAEMIC ATTACK [None]
  - VAGINAL MYCOSIS [None]
  - VENTRICULAR HYPERTROPHY [None]
  - WHITE BLOOD CELL COUNT INCREASED [None]
